FAERS Safety Report 4490386-4 (Version None)
Quarter: 2004Q4

REPORT INFORMATION
  Report Type: 
  Country: None (occurrence: None)
  Receive Date: 20041027
  Receipt Date: 20041014
  Transmission Date: 20050328
  Serious: Yes (Death)
  Sender: FDA-Public Use
  Company Number: 2004-BP-09945RO

PATIENT

DRUGS (1)
  1. METHADONE HCL [Suspect]

REACTIONS (14)
  - ACCIDENTAL DEATH [None]
  - ATHEROSCLEROSIS [None]
  - BLOOD ETHANOL INCREASED [None]
  - CARDIOMEGALY [None]
  - CARDIOVASCULAR DISORDER [None]
  - CEREBRAL HAEMORRHAGE [None]
  - COMPLETED SUICIDE [None]
  - GUN SHOT WOUND [None]
  - HYPERTENSION [None]
  - INJURY [None]
  - MESOTHELIOMA [None]
  - MURDER [None]
  - PNEUMONIA [None]
  - THERAPEUTIC AGENT TOXICITY [None]
